FAERS Safety Report 12256745 (Version 1)
Quarter: 2016Q2

REPORT INFORMATION
  Report Type: Spontaneous
  Country: ES (occurrence: ES)
  Receive Date: 20160412
  Receipt Date: 20160412
  Transmission Date: 20160815
  Serious: Yes (Death, Hospitalization, Other)
  Sender: FDA-Public Use
  Company Number: ES-AMGEN-ESPSP2016041816

PATIENT
  Age: 88 Year
  Sex: Female

DRUGS (1)
  1. CORLENTOR [Suspect]
     Active Substance: IVABRADINE HYDROCHLORIDE
     Indication: ISCHAEMIC CARDIOMYOPATHY
     Dosage: 5 MG, BID
     Route: 048
     Dates: start: 201404, end: 20150120

REACTIONS (15)
  - General physical health deterioration [Unknown]
  - Anaemia [Unknown]
  - Atrioventricular block [Recovered/Resolved]
  - Pneumothorax [Unknown]
  - Blood pressure abnormal [Unknown]
  - Somnolence [Unknown]
  - Respiratory arrest [Fatal]
  - Drug prescribing error [Unknown]
  - Haemodynamic instability [Unknown]
  - Loss of consciousness [Recovered/Resolved]
  - Bradycardia [Unknown]
  - Post procedural complication [Unknown]
  - Subcutaneous emphysema [Unknown]
  - Pneumomediastinum [Unknown]
  - Dizziness [Unknown]

NARRATIVE: CASE EVENT DATE: 20150120
